FAERS Safety Report 6890957-1 (Version None)
Quarter: 2010Q3

REPORT INFORMATION
  Report Type: 
  Country: None (occurrence: None)
  Receive Date: 20100731
  Receipt Date: 20090423
  Transmission Date: 20110219
  Serious: No
  Sender: FDA-Public Use
  Company Number: US-PFIZER INC-2009203684

PATIENT
  Age: 58 Year
  Sex: Female
  Weight: 74 kg

DRUGS (3)
  1. LIPITOR [Suspect]
     Indication: BLOOD CHOLESTEROL INCREASED
     Dosage: 20 MG, 1X/DAY
     Dates: start: 20090411, end: 20090421
  2. LIPITOR [Suspect]
     Indication: BLOOD TRIGLYCERIDES INCREASED
  3. CELEBREX [Concomitant]
     Indication: OSTEOARTHRITIS
     Dosage: UNK

REACTIONS (7)
  - AGITATION [None]
  - ANXIETY [None]
  - FORMICATION [None]
  - NERVOUSNESS [None]
  - PALPITATIONS [None]
  - PRURITUS [None]
  - PSYCHOMOTOR HYPERACTIVITY [None]
